FAERS Safety Report 9597875 (Version 1)
Quarter: 2013Q4

REPORT INFORMATION
  Report Type: Spontaneous
  Country: US (occurrence: US)
  Receive Date: 20131004
  Receipt Date: 20131004
  Transmission Date: 20140711
  Serious: No
  Sender: FDA-Public Use
  Company Number: US-AMGEN-USASP2013021695

PATIENT
  Age: 54 Year
  Sex: Male

DRUGS (11)
  1. ENBREL [Suspect]
     Indication: RHEUMATOID ARTHRITIS
     Dosage: 25 MG, 2 TIMES/WK
     Route: 058
  2. PREDNISONE [Concomitant]
     Dosage: 1 MG, UNK
  3. GLYBURIDE [Concomitant]
     Dosage: 2.5 MG, UNK
  4. CALCIUM [Concomitant]
     Dosage: 500 UNK, UNK
  5. FENOFIBRATE [Concomitant]
     Dosage: 130 MG, UNK
  6. TRAMADOL HCL [Concomitant]
     Dosage: 50 MG, UNK
  7. METFORMIN [Concomitant]
     Dosage: 1000 MG, UNK
  8. CELEBREX [Concomitant]
     Dosage: 100 MG, UNK
  9. ALENDRONATE [Concomitant]
     Dosage: 10 MG, UNK
  10. SIMVASTATIN [Concomitant]
     Dosage: 10 MG, UNK
  11. ALEVE [Concomitant]
     Dosage: 220 MG, UNK

REACTIONS (1)
  - Therapeutic response decreased [Unknown]
